FAERS Safety Report 6187732-2 (Version None)
Quarter: 2009Q2

REPORT INFORMATION
  Report Type: 
  Country: None (occurrence: None)
  Receive Date: 20090513
  Receipt Date: 20090430
  Transmission Date: 20091009
  Serious: Yes (Hospitalization)
  Sender: FDA-Public Use
  Company Number: FR-PFIZER INC-2009205710

PATIENT
  Age: 100 Year

DRUGS (5)
  1. TRIFLUCAN [Suspect]
     Indication: ORAL CANDIDIASIS
     Dosage: 50 MG, 1X/DAY
     Route: 048
     Dates: start: 20090401, end: 20090406
  2. PREVISCAN [Interacting]
     Indication: ATRIAL FIBRILLATION
     Dosage: 0.25 MG, 1X/DAY
     Route: 048
     Dates: start: 20021001, end: 20090406
  3. LEVOTHYROX [Concomitant]
     Indication: HYPOTHYROIDISM
     Dosage: 75 UG, 1X/DAY
     Route: 048
  4. SELOKEN [Concomitant]
     Indication: ATRIAL FIBRILLATION
     Dosage: 100 MG, 1X/DAY
     Route: 048
  5. NITRODERM [Concomitant]
     Indication: ANGINA PECTORIS
     Dosage: 1 DF, 1X/DAY
     Route: 062

REACTIONS (4)
  - ANAEMIA [None]
  - DRUG INTERACTION [None]
  - INTERNATIONAL NORMALISED RATIO INCREASED [None]
  - VESSEL PUNCTURE SITE HAEMORRHAGE [None]
